FAERS Safety Report 5394702-0 (Version None)
Quarter: 2007Q3

REPORT INFORMATION
  Report Type: 
  Country: None (occurrence: None)
  Receive Date: 20070723
  Receipt Date: 20070717
  Transmission Date: 20080115
  Serious: No
  Sender: FDA-Public Use
  Company Number: US-PFIZER INC-2007030619

PATIENT

DRUGS (2)
  1. NELFINAVIR MESILATE [Suspect]
     Route: 048
  2. COMBIVIR [Suspect]
     Dosage: DAILY DOSE:900MG
     Route: 048
     Dates: start: 20070212

REACTIONS (1)
  - DRUG EXPOSURE DURING PREGNANCY [None]
